FAERS Safety Report 13875491 (Version 1)
Quarter: 2017Q3

REPORT INFORMATION
  Report Type: Spontaneous
  Country: US (occurrence: US)
  Receive Date: 20170817
  Receipt Date: 20170817
  Transmission Date: 20171127
  Serious: No
  Sender: FDA-Public Use
  Company Number: US-009507513-1708USA003763

PATIENT

DRUGS (1)
  1. DULERA [Suspect]
     Active Substance: FORMOTEROL FUMARATE DIHYDRATE\MOMETASONE FUROATE
     Dosage: 2 INHALATIONS IN AM/PM
     Route: 055

REACTIONS (4)
  - Product container issue [Unknown]
  - Drug dose omission [Unknown]
  - Wrong technique in product usage process [Unknown]
  - No adverse event [Unknown]
